FAERS Safety Report 8964209 (Version 3)
Quarter: 2012Q4

REPORT INFORMATION
  Report Type: 
  Country: US (occurrence: US)
  Receive Date: 20121214
  Receipt Date: 20121228
  Transmission Date: 20130627
  Serious: No
  Sender: FDA-Public Use
  Company Number: US-PFIZER INC-2012309972

PATIENT
  Age: 67 Year
  Sex: Female
  Weight: 68 kg

DRUGS (5)
  1. ESTRING [Suspect]
     Indication: ATROPHIC VULVOVAGINITIS
     Dosage: 2 mg, UNK (1 ring for 3 month 2 mg)
     Route: 067
     Dates: start: 20121115, end: 20121210
  2. ESTRING [Suspect]
     Indication: DRYNESS VAGINAL
  3. ESTRING [Suspect]
     Indication: VULVOVAGINAL PRURITUS
  4. ESTRING [Suspect]
     Indication: VULVOVAGINAL BURNING SENSATION
  5. ATIVAN [Concomitant]
     Indication: SLEEP PROBLEM
     Dosage: 0.5 mg, daily (HS)

REACTIONS (4)
  - Product quality issue [Recovered/Resolved]
  - Vulvovaginal discomfort [Recovered/Resolved]
  - Application site haemorrhage [Unknown]
  - Application site pain [Unknown]
